FAERS Safety Report 13560985 (Version 1)
Quarter: 2017Q2

REPORT INFORMATION
  Report Type: Spontaneous
  Country: US (occurrence: US)
  Receive Date: 20170518
  Receipt Date: 20170518
  Transmission Date: 20170830
  Serious: Yes (Other)
  Sender: FDA-Public Use
  Company Number: US-ROCHE-1016192

PATIENT
  Age: 50 Year
  Sex: Female

DRUGS (1)
  1. NAPROXEN. [Suspect]
     Active Substance: NAPROXEN
     Indication: PAIN
     Route: 048
     Dates: start: 201108, end: 20110908

REACTIONS (2)
  - Headache [Recovered/Resolved]
  - Nausea [Not Recovered/Not Resolved]

NARRATIVE: CASE EVENT DATE: 20110908
